FAERS Safety Report 5019850-6 (Version None)
Quarter: 2006Q2

REPORT INFORMATION
  Report Type: 
  Country: None (occurrence: None)
  Receive Date: 20060605
  Receipt Date: 20060605
  Transmission Date: 20061013
  Serious: Yes (Other)
  Sender: FDA-Public Use
  Company Number: None

PATIENT
  Age: 51 Year
  Sex: Male
  Weight: 100 kg

DRUGS (2)
  1. MEPERIDINE HCL [Suspect]
     Indication: PAIN
     Dosage: 1 DOSE
     Dates: start: 20060515
  2. CEFAZOLIN [Concomitant]

REACTIONS (1)
  - URTICARIA GENERALISED [None]
